FAERS Safety Report 9691888 (Version 1)
Quarter: 2013Q4

REPORT INFORMATION
  Report Type: Spontaneous
  Country: US (occurrence: US)
  Receive Date: 20131117
  Receipt Date: 20131117
  Transmission Date: 20140711
  Serious: No
  Sender: FDA-Public Use
  Company Number: US-009507513-1311USA002491

PATIENT
  Sex: Female

DRUGS (1)
  1. IMPLANON [Suspect]
     Dosage: 1 ROD (68 MG) / THREE YEARS
     Route: 059
     Dates: start: 201211

REACTIONS (3)
  - Device breakage [Unknown]
  - Product quality issue [Unknown]
  - No adverse event [Unknown]
